FAERS Safety Report 21721278 (Version 2)
Quarter: 2022Q4

REPORT INFORMATION
  Report Type: Report from Study
  Country: FR (occurrence: FR)
  Receive Date: 20221213
  Receipt Date: 20221221
  Transmission Date: 20230112
  Serious: Yes (Death, Other)
  Sender: FDA-Public Use
  Company Number: FR-ViiV Healthcare Limited-FR2022EME185518

PATIENT

DRUGS (1)
  1. DOLUTEGRAVIR SODIUM\LAMIVUDINE [Suspect]
     Active Substance: DOLUTEGRAVIR SODIUM\LAMIVUDINE
     Indication: HIV infection
     Dosage: UNK
     Route: 048
     Dates: start: 202105

REACTIONS (1)
  - Death [Fatal]

NARRATIVE: CASE EVENT DATE: 20221117
